FAERS Safety Report 11774520 (Version 2)
Quarter: 2015Q4

REPORT INFORMATION
  Report Type: Spontaneous
  Country: US (occurrence: US)
  Receive Date: 20151124
  Receipt Date: 20151124
  Transmission Date: 20160304
  Serious: Yes (Other)
  Sender: FDA-Public Use
  Company Number: US-MALLINCKRODT-T201500923

PATIENT
  Age: 25 Year
  Sex: Female

DRUGS (9)
  1. TYLENOL [Concomitant]
     Active Substance: ACETAMINOPHEN
  2. GABLOFEN [Suspect]
     Active Substance: BACLOFEN
     Indication: MUSCLE SPASTICITY
     Dosage: 696.7 MCG/DAY
     Route: 037
  3. GABLOFEN [Suspect]
     Active Substance: BACLOFEN
     Dosage: 816 MCG/DAY
     Route: 037
     Dates: start: 2011, end: 2014
  4. TRAZODONE [Concomitant]
     Active Substance: TRAZODONE HYDROCHLORIDE
  5. ZOFRAN [Concomitant]
     Active Substance: ONDANSETRON HYDROCHLORIDE
  6. MIRALAX [Concomitant]
     Active Substance: POLYETHYLENE GLYCOL 3350
  7. GABLOFEN [Suspect]
     Active Substance: BACLOFEN
     Dosage: 774 MCG/DAY
     Route: 037
     Dates: start: 201406, end: 201409
  8. GABLOFEN [Suspect]
     Active Substance: BACLOFEN
     Dosage: 636 MCG/DAY
     Route: 037
     Dates: start: 201409
  9. KEPPRA [Concomitant]
     Active Substance: LEVETIRACETAM

REACTIONS (5)
  - Seizure [Unknown]
  - Hypotonia [Recovered/Resolved]
  - Muscle tightness [Recovered/Resolved]
  - Drug ineffective [Recovered/Resolved]
  - Pruritus [Unknown]

NARRATIVE: CASE EVENT DATE: 2014
